FAERS Safety Report 8009582-4 (Version None)
Quarter: 2011Q4

REPORT INFORMATION
  Report Type: 
  Country: None (occurrence: None)
  Receive Date: 20111228
  Receipt Date: 20111220
  Transmission Date: 20120403
  Serious: Yes (Hospitalization)
  Sender: FDA-Public Use
  Company Number: IT-BRISTOL-MYERS SQUIBB COMPANY-16306714

PATIENT
  Age: 71 Year
  Sex: Female

DRUGS (5)
  1. PRAVASTATIN SODIUM [Concomitant]
  2. LANSOPRAZOLE [Concomitant]
  3. IPILIMUMAB [Suspect]
     Indication: MALIGNANT MELANOMA
     Route: 042
     Dates: start: 20111104, end: 20111215
  4. ALLOPURINOL [Concomitant]
  5. BISOPROLOL [Concomitant]

REACTIONS (1)
  - ABDOMINAL PAIN [None]
